FAERS Safety Report 22295438 (Version 1)
Quarter: 2023Q2

REPORT INFORMATION
  Report Type: Spontaneous
  Country: US (occurrence: None)
  Receive Date: 20230506
  Receipt Date: 20230506
  Transmission Date: 20230721
  Serious: No
  Sender: FDA-Public Use
  Company Number: None

PATIENT
  Age: 19 Year
  Weight: 54 kg

DRUGS (6)
  1. METHYLPHENIDATE [Suspect]
     Active Substance: METHYLPHENIDATE
     Indication: Attention deficit hyperactivity disorder
     Dosage: 30 TABLETS TWICE A DAY ORAL
     Route: 048
  2. Pristiq 50mg/day [Concomitant]
  3. Buspar 15mg/day [Concomitant]
  4. Clonidine 0.2mg/day [Concomitant]
  5. Testosterone 5ml/week [Concomitant]
  6. Melatonin 6mg [Concomitant]

REACTIONS (6)
  - Heart rate increased [None]
  - Tremor [None]
  - Malaise [None]
  - Therapeutic product effect decreased [None]
  - Product substitution issue [None]
  - Therapeutic response shortened [None]
